FAERS Safety Report 16540048 (Version 1)
Quarter: 2019Q3

REPORT INFORMATION
  Report Type: Spontaneous
  Country: US (occurrence: US)
  Receive Date: 20190705
  Receipt Date: 20190705
  Transmission Date: 20191004
  Serious: No
  Sender: FDA-Public Use
  Company Number: None

PATIENT
  Age: 21 Year
  Sex: Female
  Weight: 47.63 kg

DRUGS (4)
  1. ONDANSETRON [Concomitant]
     Active Substance: ONDANSETRON
  2. NEXPLANON [Suspect]
     Active Substance: ETONOGESTREL
     Dates: start: 20180523
  3. ACETAMINOPHEN. [Concomitant]
     Active Substance: ACETAMINOPHEN
  4. JUNEL [Concomitant]
     Active Substance: ETHINYL ESTRADIOL\NORETHINDRONE ACETATE

REACTIONS (14)
  - Chest pain [None]
  - Nausea [None]
  - Mood swings [None]
  - Haemorrhage [None]
  - Pollakiuria [None]
  - Influenza like illness [None]
  - Depressed mood [None]
  - Musculoskeletal chest pain [None]
  - Dizziness [None]
  - Appetite disorder [None]
  - Breast pain [None]
  - Menstruation irregular [None]
  - Muscle spasms [None]
  - Acne [None]

NARRATIVE: CASE EVENT DATE: 20180523
